FAERS Safety Report 20865729 (Version 1)
Quarter: 2022Q2

REPORT INFORMATION
  Report Type: Spontaneous
  Country: US (occurrence: US)
  Receive Date: 20220524
  Receipt Date: 20220524
  Transmission Date: 20220721
  Serious: Yes (Hospitalization, Other)
  Sender: FDA-Public Use
  Company Number: US-BRISTOL-MYERS SQUIBB COMPANY-2022-039584

PATIENT
  Age: 77 Year
  Sex: Male

DRUGS (1)
  1. REVLIMID [Suspect]
     Active Substance: LENALIDOMIDE
     Indication: Plasma cell myeloma
     Dosage: TAKE ONE CAPSULE (15 MG) BY MOUTH ONCE DAILY FOR 21 DAYS, FOLLOWED BY 7 DAYS OF REST
     Route: 048
     Dates: start: 20210324

REACTIONS (2)
  - Pneumonia [Unknown]
  - Bronchitis [Unknown]

NARRATIVE: CASE EVENT DATE: 20220509
